FAERS Safety Report 7451163-5 (Version None)
Quarter: 2011Q2

REPORT INFORMATION
  Report Type: 
  Country: None (occurrence: None)
  Receive Date: 20110502
  Receipt Date: 20110421
  Transmission Date: 20111010
  Serious: Yes (Hospitalization)
  Sender: FDA-Public Use
  Company Number: AU-ASTRAZENECA-2011SE23474

PATIENT
  Age: 63 Year
  Sex: Female

DRUGS (5)
  1. VALIUM [Suspect]
     Route: 065
  2. SEROQUEL [Suspect]
     Route: 048
  3. LAMOTRIGINE [Suspect]
     Route: 065
  4. PROTHIADEN [Suspect]
     Route: 065
  5. LAMOTRIGINE [Suspect]
     Route: 065

REACTIONS (5)
  - PAIN IN EXTREMITY [None]
  - RHABDOMYOLYSIS [None]
  - FATIGUE [None]
  - CHROMATURIA [None]
  - GAIT DISTURBANCE [None]
